FAERS Safety Report 24300860 (Version 1)
Quarter: 2024Q3

REPORT INFORMATION
  Report Type: Report from Study
  Country: US (occurrence: US)
  Receive Date: 20240910
  Receipt Date: 20240910
  Transmission Date: 20241016
  Serious: Yes (Death, Hospitalization, Other)
  Sender: TAKEDA
  Company Number: US-TAKEDA-2024TUS083932

PATIENT
  Age: 87 Year
  Sex: Male

DRUGS (1)
  1. FRUQUINTINIB [Suspect]
     Active Substance: FRUQUINTINIB
     Indication: Rectal cancer
     Dosage: 4 MILLIGRAM
     Route: 048
     Dates: start: 20240729

REACTIONS (2)
  - Death [Fatal]
  - Pneumonia [Recovering/Resolving]

NARRATIVE: CASE EVENT DATE: 20240811
